FAERS Safety Report 4552669-9 (Version None)
Quarter: 2005Q1

REPORT INFORMATION
  Report Type: 
  Country: None (occurrence: None)
  Receive Date: 20050112
  Receipt Date: 20041222
  Transmission Date: 20050727
  Serious: No
  Sender: FDA-Public Use
  Company Number: USA040259191

PATIENT
  Sex: Female

DRUGS (5)
  1. EVISTA [Suspect]
     Indication: OSTEOPOROSIS
     Dosage: 60 MG/1 DAY
     Dates: start: 20030101
  2. CALCIUM GLUCONATE [Concomitant]
  3. ONE-A-DAY 55 PLUS [Concomitant]
  4. VITAMIN D [Concomitant]
  5. VITAMIN K [Concomitant]

REACTIONS (14)
  - BONE DENSITY DECREASED [None]
  - CARDIAC FAILURE CONGESTIVE [None]
  - DYSPHAGIA [None]
  - HAEMATEMESIS [None]
  - HAEMORRHAGE [None]
  - HUMERUS FRACTURE [None]
  - PNEUMONIA [None]
  - SPINAL DISORDER [None]
  - SPINAL FRACTURE [None]
  - TOOTH FRACTURE [None]
  - TOOTH INJURY [None]
  - TOOTH LOSS [None]
  - ULCER [None]
  - UPPER LIMB FRACTURE [None]
